FAERS Safety Report 15109608 (Version 1)
Quarter: 2018Q3

REPORT INFORMATION
  Report Type: Spontaneous
  Country: IE (occurrence: LU)
  Receive Date: 20180705
  Receipt Date: 20180705
  Transmission Date: 20181010
  Serious: Yes (Disabling, Other)
  Sender: FDA-Public Use
  Company Number: IE-BAYER-2018-117173

PATIENT
  Age: 38 Year
  Sex: Male

DRUGS (3)
  1. CIPROXINE 500 MG [Suspect]
     Active Substance: CIPROFLOXACIN
     Indication: PAIN
  2. CIPROXINE 500 MG [Suspect]
     Active Substance: CIPROFLOXACIN
     Indication: INFECTION
  3. CIPROXINE 500 MG [Suspect]
     Active Substance: CIPROFLOXACIN
     Indication: CATHETER SITE INFECTION
     Dosage: UNK
     Dates: start: 2009

REACTIONS (18)
  - Burning sensation [Not Recovered/Not Resolved]
  - Tendonitis [Recovering/Resolving]
  - Dyskinesia [None]
  - Hypoacusis [None]
  - Dyspepsia [None]
  - Insomnia [None]
  - Gait disturbance [Not Recovered/Not Resolved]
  - Dry skin [None]
  - Nervous system disorder [Not Recovered/Not Resolved]
  - Pain in extremity [None]
  - Gastrooesophageal reflux disease [None]
  - Nocturia [None]
  - Dry eye [Not Recovered/Not Resolved]
  - Tendonitis [Not Recovered/Not Resolved]
  - Ear discomfort [None]
  - Rotator cuff syndrome [Not Recovered/Not Resolved]
  - Pain in extremity [Recovering/Resolving]
  - Visual impairment [None]

NARRATIVE: CASE EVENT DATE: 201410
